FAERS Safety Report 18935526 (Version 1)
Quarter: 2021Q1

REPORT INFORMATION
  Report Type: Spontaneous
  Country: CH (occurrence: CH)
  Receive Date: 20210225
  Receipt Date: 20210225
  Transmission Date: 20210420
  Serious: Yes (Hospitalization, Other)
  Sender: FDA-Public Use
  Company Number: CH-JNJFOC-20210238559

PATIENT
  Age: 76 Year
  Sex: Female

DRUGS (16)
  1. ZALDIAR [Concomitant]
     Active Substance: ACETAMINOPHEN\TRAMADOL HYDROCHLORIDE
     Dosage: UNK UNK, AS NEEDED
     Route: 065
     Dates: end: 20210124
  2. TEMESTA [LORAZEPAM] [Concomitant]
     Active Substance: LORAZEPAM
     Indication: PRODUCT USED FOR UNKNOWN INDICATION
     Dosage: UNK UNK, ONCE
     Route: 065
     Dates: start: 20210201, end: 20210201
  3. LAROXYL [Interacting]
     Active Substance: AMITRIPTYLINE HYDROCHLORIDE
     Indication: PRODUCT USED FOR UNKNOWN INDICATION
     Dosage: 100 MILLIGRAM, 2/DAY
     Route: 065
     Dates: end: 20210201
  4. AMOXICILLIN TRIHYDRATE [Concomitant]
     Active Substance: AMOXICILLIN
     Indication: PNEUMONIA
     Dosage: UNK
     Route: 065
     Dates: start: 20210124, end: 20210131
  5. PURSANA [Concomitant]
     Active Substance: FIG FRUIT OIL\SORBITOL
     Indication: PRODUCT USED FOR UNKNOWN INDICATION
     Dosage: UNK
     Route: 065
     Dates: start: 20210124
  6. TRAMADOL HYDROCHLORIDE. [Interacting]
     Active Substance: TRAMADOL HYDROCHLORIDE
     Dosage: 50 MILLIGRAM, 3/DAY
     Route: 048
     Dates: start: 20210131, end: 20210201
  7. PANTOPRAZOLE [Concomitant]
     Active Substance: PANTOPRAZOLE
     Indication: PRODUCT USED FOR UNKNOWN INDICATION
     Dosage: UNK
     Route: 065
     Dates: end: 202101
  8. MOVICOL [Concomitant]
     Active Substance: POLYETHYLENE GLYCOL 3350\POTASSIUM CHLORIDE\SODIUM BICARBONATE\SODIUM CHLORIDE
     Indication: PRODUCT USED FOR UNKNOWN INDICATION
     Dosage: UNK UNK, AS NEEDED
     Route: 065
     Dates: start: 20210124
  9. TEMGESIC [Concomitant]
     Active Substance: BUPRENORPHINE HYDROCHLORIDE
     Indication: PRODUCT USED FOR UNKNOWN INDICATION
     Dosage: UNK
     Route: 065
     Dates: start: 20210124, end: 20210128
  10. TRAMADOL HYDROCHLORIDE. [Suspect]
     Active Substance: TRAMADOL HYDROCHLORIDE
     Indication: PRODUCT USED FOR UNKNOWN INDICATION
     Dosage: 50 MILLIGRAM, 4/DAY
     Route: 048
     Dates: start: 20210129, end: 20210130
  11. NEXIUM [Interacting]
     Active Substance: ESOMEPRAZOLE MAGNESIUM
     Indication: PRODUCT USED FOR UNKNOWN INDICATION
     Dosage: 20 MILLIGRAM, 1/DAY
     Route: 048
     Dates: start: 20210124
  12. VITAMIN B [VITAMIN B NOS] [Concomitant]
     Indication: PRODUCT USED FOR UNKNOWN INDICATION
     Dosage: UNK
     Route: 065
     Dates: end: 20210124
  13. PARACETAMOL [Concomitant]
     Active Substance: ACETAMINOPHEN
     Indication: PRODUCT USED FOR UNKNOWN INDICATION
     Dosage: UNK
     Route: 065
     Dates: start: 20210124
  14. HEPARIN [Concomitant]
     Active Substance: HEPARIN SODIUM
     Indication: PRODUCT USED FOR UNKNOWN INDICATION
     Dosage: UNK
     Route: 065
     Dates: start: 20210124
  15. NIMESULIDE [Concomitant]
     Active Substance: NIMESULIDE
     Dosage: UNK
     Route: 065
     Dates: end: 20210124
  16. CLARITHROMYCINE [Concomitant]
     Active Substance: CLARITHROMYCIN
     Indication: PNEUMONIA
     Dosage: UNK
     Route: 065
     Dates: start: 20210124, end: 20210125

REACTIONS (12)
  - Drug interaction [Recovering/Resolving]
  - Fall [Recovered/Resolved]
  - Hypertension [Unknown]
  - Drug interaction [Recovering/Resolving]
  - Confusional state [Recovered/Resolved]
  - Palpitations [Unknown]
  - Serotonin syndrome [Recovering/Resolving]
  - Hallucination, visual [Unknown]
  - Muscle spasticity [Recovered/Resolved]
  - Disorientation [Recovered/Resolved]
  - Dizziness [Unknown]
  - Gait disturbance [Unknown]

NARRATIVE: CASE EVENT DATE: 20210129
